FAERS Safety Report 5432169-4 (Version None)
Quarter: 2007Q3

REPORT INFORMATION
  Report Type: 
  Country: None (occurrence: None)
  Receive Date: 20070830
  Receipt Date: 20070824
  Transmission Date: 20080115
  Serious: Yes (Hospitalization)
  Sender: FDA-Public Use
  Company Number: US-MERCK-0708USA05312

PATIENT
  Age: 72 Year
  Sex: Male

DRUGS (22)
  1. PRINIVIL [Suspect]
     Route: 048
     Dates: start: 20070713, end: 20070716
  2. COREG [Concomitant]
     Route: 065
     Dates: end: 20060601
  3. ALBUTEROL [Concomitant]
  4. FOSAMAX [Concomitant]
     Route: 048
  5. SPIRIVA [Concomitant]
     Route: 048
  6. FORADIL [Concomitant]
     Route: 048
  7. ASMANEX TWISTHALER [Concomitant]
  8. XOPENEX [Concomitant]
  9. MUCINEX [Concomitant]
     Route: 065
  10. CALCIUM (UNSPECIFIED) AND VITAMIN D (UNSPECIFIED) [Concomitant]
     Route: 048
  11. CALCIUM (UNSPECIFIED) AND VITAMIN D (UNSPECIFIED) [Concomitant]
     Route: 048
  12. ASPIRIN [Concomitant]
     Route: 065
  13. BISOPROLOL FUMARATE [Concomitant]
     Route: 065
     Dates: start: 20060606, end: 20070109
  14. BISOPROLOL FUMARATE [Concomitant]
     Route: 065
     Dates: start: 20070110, end: 20070615
  15. BISOPROLOL FUMARATE [Concomitant]
     Route: 065
     Dates: start: 20070616
  16. XANAX [Concomitant]
     Route: 065
  17. SIMVASTATIN [Concomitant]
     Route: 048
  18. POTASSIUM IODIDE [Concomitant]
     Indication: INCREASED UPPER AIRWAY SECRETION
     Route: 065
  19. POTASSIUM IODIDE [Concomitant]
     Indication: COUGH
     Route: 065
  20. GASTROINTESTINAL PREPARATIONS (UNSPECIFIED) [Concomitant]
     Route: 065
  21. VASOTEC [Concomitant]
     Route: 048
     Dates: end: 20070621
  22. VASOTEC [Concomitant]
     Route: 048
     Dates: start: 20070622, end: 20070712

REACTIONS (3)
  - BLOOD URINE PRESENT [None]
  - HAEMORRHAGE URINARY TRACT [None]
  - PROSTATIC SPECIFIC ANTIGEN INCREASED [None]
